FAERS Safety Report 4298650-9 (Version None)
Quarter: 2004Q1

REPORT INFORMATION
  Report Type: 
  Country: None (occurrence: None)
  Receive Date: 20040126
  Receipt Date: 20031022
  Transmission Date: 20041129
  Serious: No
  Sender: FDA-Public Use
  Company Number: USA031050857

PATIENT
  Sex: Male
  Weight: 61 kg

DRUGS (4)
  1. STRATTERA [Suspect]
     Indication: ATTENTION DEFICIT/HYPERACTIVITY DISORDER
     Dosage: 80 MG/DAY
     Dates: start: 20030710, end: 20030912
  2. CELEXA [Concomitant]
  3. LITHIUM [Concomitant]
  4. ADDERALL [Concomitant]

REACTIONS (3)
  - IRRITABILITY [None]
  - NEGATIVISM [None]
  - SOMNOLENCE [None]
